FAERS Safety Report 4719457-1 (Version None)
Quarter: 2005Q3

REPORT INFORMATION
  Report Type: 
  Country: None (occurrence: None)
  Receive Date: 20050719
  Receipt Date: 20050711
  Transmission Date: 20060218
  Serious: Yes (Other)
  Sender: FDA-Public Use
  Company Number: 163-20785-05070040

PATIENT
  Age: 46 Year
  Sex: Female
  Weight: 55.611 kg

DRUGS (3)
  1. THALOMID [Suspect]
     Indication: MULTIPLE MYELOMA
     Dosage: 50 MG DAILY ORAL
     Route: 048
     Dates: start: 20031215, end: 20050701
  2. ANTIHYPERTENSIVE [Concomitant]
  3. ANTIDEPRESSANT [Concomitant]

REACTIONS (10)
  - ATROPHY [None]
  - BLOOD HUMAN CHORIONIC GONADOTROPIN INCREASED [None]
  - DRUG EXPOSURE DURING PREGNANCY [None]
  - DYSPAREUNIA [None]
  - HOT FLUSH [None]
  - LIBIDO DECREASED [None]
  - OCCULT BLOOD POSITIVE [None]
  - PREGNANCY TEST URINE POSITIVE [None]
  - VAGINAL DISORDER [None]
  - VULVOVAGINAL DRYNESS [None]
